FAERS Safety Report 6051272-1 (Version None)
Quarter: 2009Q1

REPORT INFORMATION
  Report Type: 
  Country: None (occurrence: None)
  Receive Date: 20090126
  Receipt Date: 20090114
  Transmission Date: 20090719
  Serious: Yes (Life-Threatening, Hospitalization)
  Sender: FDA-Public Use
  Company Number: US-BIOGENIDEC-2008BI010624

PATIENT
  Age: 42 Year
  Sex: Female
  Weight: 58 kg

DRUGS (7)
  1. TYSABRI [Suspect]
     Indication: MULTIPLE SCLEROSIS
     Route: 042
     Dates: start: 20071017
  2. DIAZEPAM [Concomitant]
     Indication: VERTIGO
     Route: 048
  3. CARBAMAZEPINE [Concomitant]
     Indication: NEURALGIA
     Route: 048
  4. PREMARIN [Concomitant]
     Indication: HORMONE REPLACEMENT THERAPY
     Route: 048
  5. TRAMADOL HCL [Concomitant]
     Indication: PAIN
     Route: 048
  6. CELEXA [Concomitant]
  7. HYDROXYZINE [Concomitant]
     Indication: PRURITUS
     Route: 048

REACTIONS (2)
  - CHOLECYSTITIS INFECTIVE [None]
  - PNEUMONIA [None]
